FAERS Safety Report 8457208-8 (Version None)
Quarter: 2012Q2

REPORT INFORMATION
  Report Type: 
  Country: None (occurrence: None)
  Receive Date: 20120621
  Receipt Date: 20120613
  Transmission Date: 20120825
  Serious: Yes (Life-Threatening, Other)
  Sender: FDA-Public Use
  Company Number: PHFR2012GB003448

PATIENT
  Age: 68 Year
  Sex: Female
  Weight: 88 kg

DRUGS (4)
  1. CYCLOSPORINE [Suspect]
     Dosage: 150 MG, BID
     Dates: start: 20090601, end: 20100101
  2. AMLODIPINE [Concomitant]
     Indication: HYPERTENSION
     Dosage: 10 MG, QD
     Route: 048
     Dates: start: 20030101
  3. HUMIRA [Suspect]
     Indication: PSORIASIS
     Dosage: 40 MG, ONCE IN TWO WEEKS
     Route: 058
     Dates: start: 20100310, end: 20111117
  4. METHOTREXATE [Suspect]
     Dates: start: 20070901, end: 20090601

REACTIONS (6)
  - DECREASED APPETITE [None]
  - OVARIAN EPITHELIAL CANCER [None]
  - OSTEOARTHRITIS [None]
  - WEIGHT DECREASED [None]
  - CHANGE OF BOWEL HABIT [None]
  - ABDOMINAL DISTENSION [None]
